FAERS Safety Report 14303282 (Version 1)
Quarter: 2017Q4

REPORT INFORMATION
  Report Type: Spontaneous
  Country: DE (occurrence: DE)
  Receive Date: 20171219
  Receipt Date: 20171219
  Transmission Date: 20180321
  Serious: Yes (Other)
  Sender: FDA-Public Use
  Company Number: DE-OTSUKA-19438498

PATIENT
  Sex: Female

DRUGS (2)
  1. L-THYROXINE [Concomitant]
     Active Substance: LEVOTHYROXINE
     Indication: HYPOTHYROIDISM
     Dosage: 1 DF: 75 UNITS NOS
     Route: 065
  2. ABILIFY [Suspect]
     Active Substance: ARIPIPRAZOLE
     Indication: SCHIZOPHRENIA
     Dosage: REDUCED TO 5MG
     Route: 048
     Dates: start: 20130111

REACTIONS (2)
  - Ventricular extrasystoles [Not Recovered/Not Resolved]
  - Off label use [Unknown]
